FAERS Safety Report 13963280 (Version 1)
Quarter: 2017Q3

REPORT INFORMATION
  Report Type: Spontaneous
  Country: US (occurrence: US)
  Receive Date: 20170913
  Receipt Date: 20170913
  Transmission Date: 20171128
  Serious: Yes (Other)
  Sender: FDA-Public Use
  Company Number: US-DRREDDYS-USA/USA/17/0093351

PATIENT
  Age: 18 Year
  Sex: Male

DRUGS (4)
  1. TACROLIMUS. [Suspect]
     Active Substance: TACROLIMUS
     Indication: IMMUNOSUPPRESSANT DRUG THERAPY
     Route: 065
  2. PREDNISONE. [Concomitant]
     Active Substance: PREDNISONE
     Indication: IMMUNOSUPPRESSANT DRUG THERAPY
     Route: 065
  3. CYTOXAN [Concomitant]
     Active Substance: CYCLOPHOSPHAMIDE
     Indication: ACUTE MYELOID LEUKAEMIA
     Route: 065
  4. BUSULFAN. [Concomitant]
     Active Substance: BUSULFAN
     Indication: ACUTE MYELOID LEUKAEMIA
     Route: 065

REACTIONS (3)
  - Graft versus host disease in gastrointestinal tract [Unknown]
  - Acute myeloid leukaemia recurrent [Unknown]
  - Weight decreased [Unknown]
